FAERS Safety Report 9218659 (Version 1)
Quarter: 2013Q2

REPORT INFORMATION
  Report Type: Spontaneous
  Country: US (occurrence: None)
  Receive Date: 20130405
  Receipt Date: 20130405
  Transmission Date: 20140414
  Serious: Yes (Hospitalization)
  Sender: FDA-Public Use
  Company Number: None

PATIENT
  Age: 28 Year
  Sex: Male
  Weight: 99.2 kg

DRUGS (1)
  1. DAPSONE [Suspect]
     Dates: start: 20130227

REACTIONS (5)
  - Drug reaction with eosinophilia and systemic symptoms [None]
  - Swelling face [None]
  - Pyrexia [None]
  - Rash [None]
  - Hepatic enzyme increased [None]
